FAERS Safety Report 9159948 (Version 1)
Quarter: 2013Q1

REPORT INFORMATION
  Report Type: Spontaneous
  Country: US (occurrence: US)
  Receive Date: 20130313
  Receipt Date: 20130313
  Transmission Date: 20140127
  Serious: No
  Sender: FDA-Public Use
  Company Number: US-BAYER-2013-017751

PATIENT
  Sex: 0

DRUGS (1)
  1. CIPRO [Suspect]

REACTIONS (3)
  - Wrong technique in drug usage process [None]
  - Device occlusion [None]
  - Product quality issue [None]
